FAERS Safety Report 8618226-X (Version None)
Quarter: 2012Q3

REPORT INFORMATION
  Report Type: 
  Country: None (occurrence: None)
  Receive Date: 20120824
  Receipt Date: 20120813
  Transmission Date: 20120928
  Serious: Yes (Other)
  Sender: FDA-Public Use
  Company Number: US-009507513-1208USA006678

PATIENT

DRUGS (15)
  1. REBETOL [Suspect]
     Dosage: 1000 MG, QD
     Route: 048
     Dates: start: 20120706, end: 20120722
  2. TRUVADA [Concomitant]
     Indication: HIV INFECTION
     Dosage: UNK, QD
     Route: 048
  3. METFORMIN HYDROCHLORIDE [Concomitant]
     Indication: INSULIN RESISTANCE
     Dosage: UNK
     Route: 048
  4. LOSARTAN POTASSIUM [Concomitant]
     Indication: HYPERTENSION
     Dosage: UNK, QD
     Route: 048
  5. PROCRIT [Concomitant]
     Indication: ANAEMIA
     Dosage: UNK, QW
     Route: 058
  6. ONDANSETRON [Concomitant]
     Indication: NAUSEA
     Dosage: UNK, PRN
     Route: 048
  7. PEG-INTRON [Suspect]
     Indication: HEPATITIS C
     Dosage: 150 MICROGRAM, QW
     Route: 058
     Dates: start: 20120510, end: 20120802
  8. FENOFIBRATE [Concomitant]
     Indication: HYPERLIPIDAEMIA
     Dosage: UNK, QD
     Route: 048
  9. ISENTRESS [Concomitant]
     Indication: HIV INFECTION
     Dosage: UNK, BID
     Route: 048
  10. VITAMINS (UNSPECIFIED) [Concomitant]
     Indication: ROUTINE HEALTH MAINTENANCE
     Dosage: UNK, QD
     Route: 048
  11. REBETOL [Suspect]
     Indication: HEPATITIS C
     Dosage: 600 MG, BID
     Route: 048
     Dates: start: 20120510, end: 20120802
  12. REBETOL [Suspect]
     Dosage: 800 MG, QD
     Dates: start: 20120723, end: 20120802
  13. REBETOL [Suspect]
     Dosage: 600 MG, QD
     Dates: start: 20120814
  14. VICTRELIS [Suspect]
     Indication: HEPATITIS C
     Dosage: 800 MG, TID
     Route: 048
     Dates: start: 20120607, end: 20120806
  15. NEUPOGEN [Concomitant]
     Indication: NEUTROPENIA
     Dosage: UNK, BID
     Route: 058

REACTIONS (1)
  - ANAEMIA [None]
